FAERS Safety Report 5458535-9 (Version None)
Quarter: 2007Q3

REPORT INFORMATION
  Report Type: 
  Country: None (occurrence: None)
  Receive Date: 20070813
  Receipt Date: 20070122
  Transmission Date: 20080115
  Serious: No
  Sender: FDA-Public Use
  Company Number: 20073610

PATIENT
  Age: 68 Year
  Sex: Male

DRUGS (6)
  1. LIORESAL [Suspect]
     Indication: MUSCLE SPASTICITY
     Dosage: MCG, DAILY, INTRATHECAL
     Route: 037
  2. HYDROMORPHONE HCL [Concomitant]
  3. BUPIVACAINE [Concomitant]
  4. CLONIDINE [Concomitant]
  5. FENTANYL [Concomitant]
  6. PRIALT [Concomitant]

REACTIONS (2)
  - PAIN [None]
  - PARAESTHESIA [None]
